FAERS Safety Report 22756035 (Version 5)
Quarter: 2023Q4

REPORT INFORMATION
  Report Type: Spontaneous
  Country: CA (occurrence: CA)
  Receive Date: 20230727
  Receipt Date: 20231120
  Transmission Date: 20240109
  Serious: No
  Sender: FDA-Public Use
  Company Number: CA-PFIZER INC-202300258936

PATIENT
  Age: 26 Year
  Sex: Female

DRUGS (1)
  1. ABRILADA [Suspect]
     Active Substance: ADALIMUMAB-AFZB
     Indication: Hidradenitis
     Dosage: 1 DF W0 160MG, W2 80MG, THEN 40MG EVERY WEEK STARTING W4
     Route: 058
     Dates: start: 20230401

REACTIONS (1)
  - Syringe issue [Unknown]
